FAERS Safety Report 23079742 (Version 1)
Quarter: 2023Q4

REPORT INFORMATION
  Report Type: Spontaneous
  Country: US (occurrence: None)
  Receive Date: 20231017
  Receipt Date: 20231017
  Transmission Date: 20240110
  Serious: Yes (Hospitalization)
  Sender: FDA-Public Use
  Company Number: None

PATIENT
  Age: 72 Year
  Sex: Male

DRUGS (1)
  1. ROSUVASTATIN CALCIUM [Suspect]
     Active Substance: ROSUVASTATIN CALCIUM
     Dosage: FREQUENCY : DAILY;?
     Route: 048
     Dates: start: 20220330, end: 20220621

REACTIONS (6)
  - Arthralgia [None]
  - Myalgia [None]
  - Rhabdomyolysis [None]
  - Oedema peripheral [None]
  - Blood creatine phosphokinase increased [None]
  - Myopathy [None]

NARRATIVE: CASE EVENT DATE: 20220817
